FAERS Safety Report 7221872-1 (Version None)
Quarter: 2011Q1

REPORT INFORMATION
  Report Type: 
  Country: None (occurrence: None)
  Receive Date: 20110112
  Receipt Date: 20110106
  Transmission Date: 20110831
  Serious: Yes (Other)
  Sender: FDA-Public Use
  Company Number: A0904794A

PATIENT
  Age: 39 Year
  Sex: Male

DRUGS (2)
  1. AVODART [Suspect]
     Indication: ALOPECIA
     Route: 065
     Dates: start: 20000101
  2. CREATINE [Suspect]
     Route: 065
     Dates: start: 20100101, end: 20100101

REACTIONS (3)
  - OEDEMA [None]
  - ALOPECIA [None]
  - DIHYDROTESTOSTERONE INCREASED [None]
